FAERS Safety Report 5522157-1 (Version None)
Quarter: 2007Q4

REPORT INFORMATION
  Report Type: 
  Country: None (occurrence: None)
  Receive Date: 20071116
  Receipt Date: 20071105
  Transmission Date: 20080405
  Serious: Yes (Other)
  Sender: FDA-Public Use
  Company Number: T07-JPN-05887-01

PATIENT
  Age: 78 Year
  Sex: Female
  Weight: 63 kg

DRUGS (5)
  1. MEMANTINE HCL [Suspect]
     Indication: DEMENTIA ALZHEIMER'S TYPE
     Dosage: 20 MG QD PO
     Route: 048
     Dates: start: 20070215, end: 20071022
  2. FLUTICASONE PROPIONATE [Concomitant]
  3. SALMETEROL XINAFOATE [Concomitant]
  4. ATORVASTATIN CALCIUM [Concomitant]
  5. FUROSEMIDE [Concomitant]

REACTIONS (1)
  - BREAST CANCER FEMALE [None]
